FAERS Safety Report 6852552-X (Version None)
Quarter: 2010Q3

REPORT INFORMATION
  Report Type: 
  Country: None (occurrence: None)
  Receive Date: 20100717
  Receipt Date: 20071116
  Transmission Date: 20110219
  Serious: No
  Sender: FDA-Public Use
  Company Number: US-PFIZER INC-2007099149

PATIENT
  Sex: Female
  Weight: 56.8 kg

DRUGS (5)
  1. CHANTIX [Suspect]
     Dates: start: 20071113, end: 20071113
  2. LORAZEPAM [Concomitant]
  3. LEVOTHYROXINE SODIUM [Concomitant]
     Indication: THYROID DISORDER
  4. ALEVE (CAPLET) [Concomitant]
     Indication: SCIATIC NERVE NEUROPATHY
  5. TYLENOL [Concomitant]
     Indication: SCIATIC NERVE NEUROPATHY

REACTIONS (3)
  - HYPOAESTHESIA [None]
  - INSOMNIA [None]
  - NIGHTMARE [None]
